FAERS Safety Report 4446293-6 (Version None)
Quarter: 2004Q3

REPORT INFORMATION
  Report Type: 
  Country: None (occurrence: None)
  Receive Date: 20040902
  Receipt Date: 20040817
  Transmission Date: 20050211
  Serious: Yes (Other)
  Sender: FDA-Public Use
  Company Number: B0342919A

PATIENT
  Age: 7 Year
  Sex: Female

DRUGS (4)
  1. LAMICTAL [Suspect]
     Indication: EPILEPSY
     Dosage: SEE  DOSAGE TEXT/ORAL
     Route: 048
  2. VALPROATE SODIUM [Concomitant]
  3. CLOBAZAM [Concomitant]
  4. ACETAZOLAMIDE [Concomitant]

REACTIONS (8)
  - AFFECT LABILITY [None]
  - CONDITION AGGRAVATED [None]
  - CONVULSION [None]
  - DISTURBANCE IN ATTENTION [None]
  - HEADACHE [None]
  - MEMORY IMPAIRMENT [None]
  - MYOCLONUS [None]
  - SOMNOLENCE [None]
